FAERS Safety Report 12242335 (Version 2)
Quarter: 2016Q2

REPORT INFORMATION
  Report Type: Spontaneous
  Country: US (occurrence: US)
  Receive Date: 20160406
  Receipt Date: 20160425
  Transmission Date: 20160815
  Serious: Yes (Other)
  Sender: FDA-Public Use
  Company Number: US-SMITH AND NEPHEW, INC-2016SMT00208

PATIENT
  Age: 49 Year
  Sex: Male
  Weight: 133.79 kg

DRUGS (5)
  1. UNSPECIFIED BLOOD PRESSURE MEDICATION [Concomitant]
     Active Substance: UNSPECIFIED INGREDIENT
  2. METFORMIN [Concomitant]
     Active Substance: METFORMIN HYDROCHLORIDE
     Dosage: 1000 MG, 2X/DAY
     Route: 048
  3. REGRANEX [Suspect]
     Active Substance: BECAPLERMIN
     Indication: WOUND
     Dosage: UNK, 1X/DAY
     Route: 061
     Dates: start: 20160302, end: 20160302
  4. INSULIN (PER SLIDING SCALE) [Concomitant]
     Dosage: UNK, AS NEEDED
     Route: 058
  5. INSULIN (UNSPECIFIED) [Concomitant]
     Dosage: 30 U, 1X/DAY
     Route: 058

REACTIONS (5)
  - Application site pain [Not Recovered/Not Resolved]
  - Blood glucose decreased [Unknown]
  - Application site scab [Unknown]
  - Dizziness [Recovered/Resolved]
  - Vascular graft [Unknown]

NARRATIVE: CASE EVENT DATE: 201603
